FAERS Safety Report 22902985 (Version 2)
Quarter: 2023Q4

REPORT INFORMATION
  Report Type: Spontaneous
  Country: FR (occurrence: FR)
  Receive Date: 20230904
  Receipt Date: 20231011
  Transmission Date: 20240110
  Serious: Yes (Life-Threatening, Hospitalization)
  Sender: FDA-Public Use
  Company Number: None

PATIENT
  Age: 50 Year
  Sex: Female
  Weight: 55 kg

DRUGS (2)
  1. REMICADE [Suspect]
     Active Substance: INFLIXIMAB
     Indication: Uveitis
     Route: 040
     Dates: start: 20230615, end: 20230724
  2. REMICADE [Suspect]
     Active Substance: INFLIXIMAB
     Route: 040
     Dates: start: 20230323, end: 20230504

REACTIONS (4)
  - Hepatic cytolysis [Not Recovered/Not Resolved]
  - Jaundice [Recovering/Resolving]
  - Autoimmune hepatitis [Recovering/Resolving]
  - Off label use [Unknown]

NARRATIVE: CASE EVENT DATE: 20230721
